FAERS Safety Report 10515540 (Version 1)
Quarter: 2014Q4

REPORT INFORMATION
  Report Type: Spontaneous
  Country: US (occurrence: None)
  Receive Date: 20141009
  Receipt Date: 20141009
  Transmission Date: 20150528
  Serious: Yes (Other)
  Sender: FDA-Public Use
  Company Number: 2014-5144

PATIENT

DRUGS (1)
  1. RECOMBINANT INSULIN LIKE GROWTH FACTOR-1 [Suspect]
     Active Substance: MECASERMIN
     Indication: PRIMARY INSULIN LIKE GROWTH FACTOR-1 DEFICIENCY
     Dosage: 240 UG/KG
     Route: 058

REACTIONS (18)
  - Middle ear effusion [None]
  - Arthralgia [None]
  - Adenoidal hypertrophy [None]
  - Sleep apnoea syndrome [None]
  - Injection site reaction [None]
  - Hypoacusis [None]
  - Hypoglycaemia [None]
  - Lipohypertrophy [None]
  - Antibody test positive [None]
  - Nephrolithiasis [None]
  - Intracranial pressure increased [None]
  - Snoring [None]
  - Hypoglycaemic seizure [None]
  - Myalgia [None]
  - Deafness neurosensory [None]
  - Thymus enlargement [None]
  - Bone pain [None]
  - Tonsillar hypertrophy [None]
